FAERS Safety Report 6326915-5 (Version None)
Quarter: 2009Q3

REPORT INFORMATION
  Report Type: 
  Country: None (occurrence: None)
  Receive Date: 20090825
  Receipt Date: 20090817
  Transmission Date: 20100115
  Serious: Yes (Other)
  Sender: FDA-Public Use
  Company Number: DE-JNJFOC-20090707174

PATIENT
  Sex: Female
  Weight: 57 kg

DRUGS (2)
  1. RISPERDAL CONSTA [Suspect]
     Indication: DELUSIONAL DISORDER, PERSECUTORY TYPE
     Route: 030
  2. AKINETON [Concomitant]
     Indication: DYSKINESIA
     Dosage: 2MG - 4MG
     Route: 048

REACTIONS (3)
  - DYSKINESIA [None]
  - SINUS ARRHYTHMIA [None]
  - VENTRICULAR TACHYCARDIA [None]
